FAERS Safety Report 17847928 (Version 1)
Quarter: 2020Q2

REPORT INFORMATION
  Report Type: Spontaneous
  Country: BR (occurrence: BR)
  Receive Date: 20200601
  Receipt Date: 20200601
  Transmission Date: 20200714
  Serious: Yes (Other)
  Sender: FDA-Public Use
  Company Number: BR-JUBILANT PHARMA LTD-2020BR000451

PATIENT
  Sex: Female

DRUGS (1)
  1. SODIUM IODIDE I-131. [Suspect]
     Active Substance: SODIUM IODIDE I-131
     Indication: THYROID CANCER
     Dosage: 50 MCI

REACTIONS (2)
  - Abortion [Not Recovered/Not Resolved]
  - Maternal exposure before pregnancy [Not Recovered/Not Resolved]
